FAERS Safety Report 14819095 (Version 3)
Quarter: 2020Q1

REPORT INFORMATION
  Report Type: Spontaneous
  Country: DE (occurrence: DE)
  Receive Date: 20180427
  Receipt Date: 20200127
  Transmission Date: 20200409
  Serious: Yes (Hospitalization)
  Sender: FDA-Public Use
  Company Number: DE-SUN PHARMACEUTICAL INDUSTRIES LTD-2018RR-171183

PATIENT
  Age: 51 Year
  Sex: Female
  Weight: 76 kg

DRUGS (1)
  1. IBUPROFEN. [Suspect]
     Active Substance: IBUPROFEN
     Indication: PRODUCT USED FOR UNKNOWN INDICATION
     Dosage: BEDARF ()
     Route: 048

REACTIONS (1)
  - Face oedema [Unknown]

NARRATIVE: CASE EVENT DATE: 20151122
